FAERS Safety Report 14523617 (Version 11)
Quarter: 2019Q3

REPORT INFORMATION
  Report Type: Report from Study
  Country: DE (occurrence: DE)
  Receive Date: 20180212
  Receipt Date: 20190917
  Transmission Date: 20191004
  Serious: Yes (Hospitalization, Other)
  Sender: FDA-Public Use
  Company Number: DE-ROCHE-2071590

PATIENT
  Age: 63 Year
  Sex: Male
  Weight: 142 kg

DRUGS (20)
  1. VENETOCLAX. [Suspect]
     Active Substance: VENETOCLAX
     Indication: CHRONIC LYMPHOCYTIC LEUKAEMIA
     Dosage: CYCLE 1 (LAST 7 DAYS 20 MG DAILY) CYCLE 2 (RAMP UP 50 MG TO 400 MG) LAST DOSE PRIOR TO SAE ON 28/FEB
     Route: 048
     Dates: start: 20180222
  2. APIXABAN [Concomitant]
     Active Substance: APIXABAN
     Route: 048
  3. VORICONAZOLE. [Concomitant]
     Active Substance: VORICONAZOLE
     Route: 048
     Dates: start: 20190215
  4. PARACETAMOL [Concomitant]
     Active Substance: ACETAMINOPHEN
     Route: 065
  5. OBINUTUZUMAB. [Suspect]
     Active Substance: OBINUTUZUMAB
     Dosage: (1000 MG FROM CYCLE 2-6 AS PER PROTOCOL) DATE OF LAST DOSE PRIOR TO SAE 31/JAN/2018 AND 22/FEB/2018
     Route: 042
  6. TELMISARTAN. [Concomitant]
     Active Substance: TELMISARTAN
  7. TORASEMIDE [Concomitant]
     Active Substance: TORSEMIDE
     Route: 048
     Dates: start: 20190423
  8. IBRUTINIB [Suspect]
     Active Substance: IBRUTINIB
     Indication: CHRONIC LYMPHOCYTIC LEUKAEMIA
     Dosage: FORM AND FREQUENCY AS PER PROTOCOL?DATE OF LAST DOSE PRIOR TO SAE 07/FEB/2018 AND 01/MAR/2018 AT 420
     Route: 048
     Dates: start: 20180116, end: 20180311
  9. HYDROCHLOROTHIAZIDE. [Concomitant]
     Active Substance: HYDROCHLOROTHIAZIDE
  10. ALLOPURINOL. [Concomitant]
     Active Substance: ALLOPURINOL
     Route: 048
     Dates: start: 20180413
  11. TOREM [TORASEMIDE] [Concomitant]
     Active Substance: TORSEMIDE
     Route: 048
  12. PANTOZOL [Concomitant]
     Active Substance: PANTOPRAZOLE SODIUM
     Route: 048
     Dates: start: 20180222
  13. APIXABAN [Concomitant]
     Active Substance: APIXABAN
     Route: 048
     Dates: start: 20180407
  14. TILIDIN [Concomitant]
     Active Substance: NALOXONE HYDROCHLORIDE\TILIDINE HYDROCHLORIDE
     Dosage: 100/8
     Route: 065
  15. OBINUTUZUMAB. [Suspect]
     Active Substance: OBINUTUZUMAB
     Indication: CHRONIC LYMPHOCYTIC LEUKAEMIA
     Dosage: FREQUENCY AND DOSE AS PER PROTOCOL?MOST RECENT DOSE 03/SEP/2018, 1000 MG
     Route: 042
     Dates: start: 20180116
  16. PRADAXA [Concomitant]
     Active Substance: DABIGATRAN ETEXILATE MESYLATE
     Route: 048
  17. BISOPROLOL [Concomitant]
     Active Substance: BISOPROLOL
     Route: 048
  18. BISOPROLOL [Concomitant]
     Active Substance: BISOPROLOL
     Route: 048
  19. CANDESARTAN. [Concomitant]
     Active Substance: CANDESARTAN
     Route: 048
  20. DABIGATRAN [Concomitant]
     Active Substance: DABIGATRAN

REACTIONS (9)
  - Cystitis escherichia [Recovered/Resolved]
  - Fall [Unknown]
  - Febrile infection [Not Recovered/Not Resolved]
  - Febrile neutropenia [Not Recovered/Not Resolved]
  - Humerus fracture [Recovered/Resolved with Sequelae]
  - Dehydration [Not Recovered/Not Resolved]
  - Coordination abnormal [Not Recovered/Not Resolved]
  - Generalised tonic-clonic seizure [Not Recovered/Not Resolved]
  - Cerebral aspergillosis [Not Recovered/Not Resolved]

NARRATIVE: CASE EVENT DATE: 20180207
